FAERS Safety Report 9541839 (Version 1)
Quarter: 2013Q2

REPORT INFORMATION
  Report Type: Spontaneous
  Country: US (occurrence: None)
  Receive Date: 20130524
  Receipt Date: 20130524
  Transmission Date: 20140414
  Serious: No
  Sender: FDA-Public Use
  Company Number: PHEH2012US023725

PATIENT
  Age: 39 Year
  Sex: Female

DRUGS (1)
  1. GILENYA (FINGOLIMOD) CAPSULE, 0.5 MG [Suspect]
     Indication: MULTIPLE SCLEROSIS
     Route: 048
     Dates: start: 20121127, end: 20121130

REACTIONS (6)
  - Cold sweat [None]
  - Nausea [None]
  - Malaise [None]
  - Dyspnoea [None]
  - Cough [None]
  - Influenza [None]
